FAERS Safety Report 23274248 (Version 1)
Quarter: 2023Q4

REPORT INFORMATION
  Report Type: Spontaneous
  Country: US (occurrence: US)
  Receive Date: 20231208
  Receipt Date: 20231208
  Transmission Date: 20240109
  Serious: Yes (Hospitalization, Other)
  Sender: FDA-Public Use
  Company Number: US-BRISTOL-MYERS SQUIBB COMPANY-2023-175508

PATIENT
  Age: 80 Year
  Sex: Male

DRUGS (19)
  1. ELIQUIS [Suspect]
     Active Substance: APIXABAN
     Indication: Atrial fibrillation
     Route: 048
     Dates: start: 20230321, end: 20230926
  2. ACORAMIDIS [Suspect]
     Active Substance: ACORAMIDIS
     Indication: Product used for unknown indication
     Dosage: THE LAST DOSE OF ACORAMIDIS PRIOR TO ONSET OF THE EVENT WAS TAKEN ON 26-SEP-2023
     Dates: start: 20220209
  3. POTASSIUM CHLORIDE [Concomitant]
     Active Substance: POTASSIUM CHLORIDE
     Indication: Cardiac failure chronic
     Dosage: AS NECESSARY (PRN)
     Route: 048
     Dates: start: 20220817
  4. VITAMIN B12 [Concomitant]
     Active Substance: CYANOCOBALAMIN
     Indication: Anaemia
     Dosage: AT UNKNOWN DOSE AS NECESSARY (PRN)
     Route: 030
     Dates: start: 20230705
  5. MAGNESIUM OXIDE [Concomitant]
     Active Substance: MAGNESIUM OXIDE
     Indication: Muscle spasms
     Route: 048
     Dates: start: 20230720
  6. IRON [Concomitant]
     Active Substance: IRON
     Indication: Anaemia
     Dosage: AT UNKNOWN DATE AS NECESSARY (PRN)
     Route: 030
     Dates: start: 20230712
  7. ACETAMINOPHEN [Concomitant]
     Active Substance: ACETAMINOPHEN
     Indication: Arthralgia
     Dosage: AS NECESSARY (PRN)
     Route: 048
     Dates: start: 20190625
  8. ACETAMINOPHEN [Concomitant]
     Active Substance: ACETAMINOPHEN
     Indication: Joint swelling
  9. ZYLOPRIM [Concomitant]
     Active Substance: ALLOPURINOL
     Indication: Gout
     Route: 048
     Dates: start: 20160512
  10. LIPITOR [Concomitant]
     Active Substance: ATORVASTATIN CALCIUM
     Indication: Coronary artery disease
     Route: 048
     Dates: start: 20140717
  11. MEDROL [Concomitant]
     Active Substance: METHYLPREDNISOLONE
     Indication: Gout
     Dosage: AS NECESSARY (PRN)
     Route: 048
     Dates: start: 20160512
  12. TOPROL XL [Concomitant]
     Active Substance: METOPROLOL SUCCINATE
     Indication: Atrial fibrillation
     Dosage: TOPROL-XL
     Route: 048
     Dates: start: 20141105
  13. TOPROL XL [Concomitant]
     Active Substance: METOPROLOL SUCCINATE
     Indication: Cardiac failure congestive
     Dosage: AS NECESSARY (PRN), TOPROL-XL
     Route: 048
  14. THERAWORX RELIEF [Concomitant]
     Indication: Muscle spasms
     Dosage: FINGERTIP CREAM AS NECESSARY (PRN)
     Route: 061
     Dates: start: 20180601
  15. XALATAN [Concomitant]
     Active Substance: LATANOPROST
     Indication: Glaucoma
     Dosage: OPHTHALMIC SOLUTION, 1 DROP INTO BOTH THE EYES AT BEDTIME
     Route: 031
     Dates: start: 20201119
  16. DEMADEX [Concomitant]
     Active Substance: TORSEMIDE
     Indication: Cardiac failure
     Route: 048
     Dates: start: 20210419
  17. VITAMINS NOS [Concomitant]
     Active Substance: VITAMINS
     Indication: Supplementation therapy
     Route: 048
     Dates: start: 20210915
  18. PFIZER-BIONTECH COVID-19 VACCINE [Concomitant]
     Active Substance: TOZINAMERAN
     Indication: COVID-19 prophylaxis
     Dates: start: 20210115
  19. PFIZER-BIONTECH COVID-19 VACCINE [Concomitant]
     Active Substance: TOZINAMERAN
     Dates: start: 20210208

REACTIONS (5)
  - Gastrointestinal haemorrhage [Recovered/Resolved]
  - Anaemia [Unknown]
  - COVID-19 [Unknown]
  - Blood loss anaemia [Unknown]
  - Oesophageal candidiasis [Unknown]

NARRATIVE: CASE EVENT DATE: 20230926
